FAERS Safety Report 7843315-7 (Version None)
Quarter: 2011Q4

REPORT INFORMATION
  Report Type: 
  Country: None (occurrence: None)
  Receive Date: 20111025
  Receipt Date: 20111019
  Transmission Date: 20120403
  Serious: Yes (Hospitalization)
  Sender: FDA-Public Use
  Company Number: JP-EISAI INC-E2020-09877-SPO-JP

PATIENT
  Age: 54 Year
  Sex: Male

DRUGS (2)
  1. ARICEPT [Suspect]
     Dosage: UNKNOWN
     Route: 048
  2. ARICEPT [Suspect]
     Dosage: 20 TABLETS
     Route: 048

REACTIONS (2)
  - SUICIDE ATTEMPT [None]
  - INTENTIONAL OVERDOSE [None]
